FAERS Safety Report 12875737 (Version 2)
Quarter: 2017Q2

REPORT INFORMATION
  Report Type: Other
  Country: DE (occurrence: DE)
  Receive Date: 20161024
  Receipt Date: 20170516
  Transmission Date: 20170830
  Serious: Yes (Congenital Anomaly, Other)
  Sender: FDA-Public Use
  Company Number: DE-LUPIN PHARMACEUTICALS INC.-2016-04780

PATIENT
  Sex: Female
  Weight: 3.48 kg

DRUGS (3)
  1. FEMIBION [Concomitant]
     Active Substance: VITAMINS
     Indication: PRODUCT USED FOR UNKNOWN INDICATION
     Dosage: 0.8 MG/D
     Route: 064
     Dates: start: 20150530, end: 20160306
  2. QUETIAPINE. [Suspect]
     Active Substance: QUETIAPINE
     Indication: PRODUCT USED FOR UNKNOWN INDICATION
     Dosage: 600 MG
     Route: 064
     Dates: start: 20150530, end: 20160306
  3. QUETIAPINE. [Suspect]
     Active Substance: QUETIAPINE
     Dosage: 100 MG ONLY TAKEN TWICE (ON DEMAND)
     Route: 064

REACTIONS (3)
  - Failure to thrive [Not Recovered/Not Resolved]
  - Hypoacusis [Not Recovered/Not Resolved]
  - Foetal exposure during pregnancy [Unknown]
